FAERS Safety Report 17721470 (Version 1)
Quarter: 2020Q2

REPORT INFORMATION
  Report Type: Spontaneous
  Country: US (occurrence: US)
  Receive Date: 20200429
  Receipt Date: 20200429
  Transmission Date: 20200714
  Serious: Yes (Death, Other)
  Sender: FDA-Public Use
  Company Number: US-AMGEN-USASP2020065235

PATIENT
  Age: 18 Year

DRUGS (4)
  1. XGEVA [Suspect]
     Active Substance: DENOSUMAB
     Indication: PROPHYLAXIS
     Dosage: 120 MILLIGRAM, QMO
     Route: 058
  2. XOFIGO [Concomitant]
     Active Substance: RADIUM RA-223 DICHLORIDE
     Indication: OSTEOSARCOMA METASTATIC
     Dosage: UNK
     Route: 042
  3. PAZOPANIB [Concomitant]
     Active Substance: PAZOPANIB
     Dosage: UNK UNK, QD
     Route: 048
  4. CALCIUM CARBONATE AND VITAMIN D [Concomitant]
     Active Substance: CALCIUM CARBONATE\VITAMIN D
     Dosage: 500MG CALCIUM+500 U VITAMIN D, BID
     Route: 048

REACTIONS (1)
  - Death [Fatal]
